FAERS Safety Report 10707281 (Version 1)
Quarter: 2015Q1

REPORT INFORMATION
  Report Type: Spontaneous
  Country: US (occurrence: US)
  Receive Date: 20150113
  Receipt Date: 20150113
  Transmission Date: 20150721
  Serious: Yes (Death)
  Sender: FDA-Public Use
  Company Number: US-BAYER-2015-002716

PATIENT
  Age: 44 Year
  Sex: Male

DRUGS (8)
  1. HEROIN [Suspect]
     Active Substance: DIACETYLMORPHINE
     Route: 045
  2. COCAINE [Suspect]
     Active Substance: COCAINE
     Route: 045
  3. OXYCODONE [Suspect]
     Active Substance: OXYCODONE
     Route: 045
  4. CODEINE [Suspect]
     Active Substance: CODEINE
     Route: 045
  5. ALPRAZOLAM. [Suspect]
     Active Substance: ALPRAZOLAM
     Route: 045
  6. DIPHENHYDRAMINE HYDROCHLORIDE. [Suspect]
     Active Substance: DIPHENHYDRAMINE HYDROCHLORIDE
     Route: 045
  7. AMITRIPTYLINE [Suspect]
     Active Substance: AMITRIPTYLINE
     Route: 045
  8. QUININE [Suspect]
     Active Substance: QUININE
     Route: 045

REACTIONS (1)
  - Drug abuse [Fatal]
